FAERS Safety Report 5500003-X (Version None)
Quarter: 2007Q4

REPORT INFORMATION
  Report Type: 
  Country: None (occurrence: None)
  Receive Date: 20071026
  Receipt Date: 20071018
  Transmission Date: 20080405
  Serious: Yes (Other)
  Sender: FDA-Public Use
  Company Number: US-PFIZER INC-2007088360

PATIENT
  Sex: Male

DRUGS (5)
  1. LIPITOR [Suspect]
     Indication: BLOOD CHOLESTEROL INCREASED
  2. ACE INHIBITOR NOS [Concomitant]
  3. ACETYLSALICYLIC ACID SRT [Concomitant]
  4. MULTI-VITAMINS [Concomitant]
  5. NASONEX [Concomitant]

REACTIONS (7)
  - BLOOD GLUCOSE INCREASED [None]
  - DIABETES MELLITUS [None]
  - GLYCOSYLATED HAEMOGLOBIN INCREASED [None]
  - HIGH DENSITY LIPOPROTEIN [None]
  - HYPOTENSION [None]
  - LOW DENSITY LIPOPROTEIN [None]
  - WEIGHT DECREASED [None]
